FAERS Safety Report 24292916 (Version 1)
Quarter: 2024Q3

REPORT INFORMATION
  Report Type: Spontaneous
  Country: US (occurrence: None)
  Receive Date: 20240906
  Receipt Date: 20240906
  Transmission Date: 20241017
  Serious: No
  Sender: DOMPE FARMACEUTICI
  Company Number: US-FARMAPROD-202311-3256

PATIENT
  Age: 76 Year
  Sex: Male
  Weight: 87.54 kg

DRUGS (24)
  1. OXERVATE [Suspect]
     Active Substance: CENEGERMIN-BKBJ
     Indication: Neurotrophic keratopathy
     Route: 047
     Dates: start: 20231026
  2. OXERVATE [Suspect]
     Active Substance: CENEGERMIN-BKBJ
  3. PIOGLITAZONE [Concomitant]
     Active Substance: PIOGLITAZONE
  4. MELATONIN [Concomitant]
     Active Substance: MELATONIN
  5. ASPIRIN [Concomitant]
     Active Substance: ASPIRIN
  6. BRIMONIDINE TARTRATE [Concomitant]
     Active Substance: BRIMONIDINE TARTRATE
  7. ATROPINE SULFATE [Concomitant]
     Active Substance: ATROPINE SULFATE
  8. VALACYCLOVIR [Concomitant]
     Active Substance: VALACYCLOVIR HYDROCHLORIDE
  9. BACITRACIN-POLYMYXIN [Concomitant]
     Dosage: 500-10K/G
  10. METFORMIN HYDROCHLORIDE [Concomitant]
     Active Substance: METFORMIN HYDROCHLORIDE
  11. EZETIMIBE [Concomitant]
     Active Substance: EZETIMIBE
  12. METOPROLOL TARTRATE [Concomitant]
     Active Substance: METOPROLOL TARTRATE
  13. ROSUVASTATIN CALCIUM [Concomitant]
     Active Substance: ROSUVASTATIN CALCIUM
  14. GEMFIBROZIL [Concomitant]
     Active Substance: GEMFIBROZIL
  15. OLMESARTAN-AMLODIPINE-HCTZ [Concomitant]
  16. JARDIANCE [Concomitant]
     Active Substance: EMPAGLIFLOZIN
  17. CLOMIPRAMINE HYDROCHLORIDE [Concomitant]
     Active Substance: CLOMIPRAMINE HYDROCHLORIDE
  18. NOURIANZ [Concomitant]
     Active Substance: ISTRADEFYLLINE
  19. RYTARY [Concomitant]
     Active Substance: CARBIDOPA\LEVODOPA
     Dosage: 61.25-245
  20. CLONAZEPAM [Concomitant]
     Active Substance: CLONAZEPAM
  21. ROPINIROLE HYDROCHLORIDE [Concomitant]
     Active Substance: ROPINIROLE HYDROCHLORIDE
  22. TAMSULOSIN HYDROCHLORIDE [Concomitant]
     Active Substance: TAMSULOSIN HYDROCHLORIDE
  23. PRAVASTATIN SODIUM [Concomitant]
     Active Substance: PRAVASTATIN SODIUM
  24. AUTOLOGOUS HUMAN CORNEAL EPITHELIAL CELLS [Concomitant]

REACTIONS (2)
  - Eye pain [Unknown]
  - Vision blurred [Unknown]

NARRATIVE: CASE EVENT DATE: 20231101
